FAERS Safety Report 5797075-4 (Version None)
Quarter: 2008Q3

REPORT INFORMATION
  Report Type: 
  Country: None (occurrence: None)
  Receive Date: 20080701
  Receipt Date: 20080624
  Transmission Date: 20090109
  Serious: Yes (Hospitalization)
  Sender: FDA-Public Use
  Company Number: FR-ASTRAZENECA-2008CG00986

PATIENT
  Age: 27607 Day
  Sex: Male

DRUGS (10)
  1. ATACAND [Suspect]
     Indication: HYPERTENSION
     Route: 048
     Dates: end: 20080131
  2. FUROSEMIDE [Suspect]
     Indication: HYPERTENSION
     Route: 048
     Dates: end: 20080131
  3. OMEPRAZOLE [Concomitant]
  4. ZYPREXA [Concomitant]
  5. BROMAZEPAM [Concomitant]
  6. FENOFIBRATE [Concomitant]
  7. ATARAX [Concomitant]
  8. CILOXAN [Concomitant]
  9. TAMSULOSINE [Concomitant]
  10. KETOPROFEN [Concomitant]

REACTIONS (1)
  - RENAL FAILURE ACUTE [None]
